FAERS Safety Report 16194891 (Version 1)
Quarter: 2019Q2

REPORT INFORMATION
  Report Type: Report from Study
  Country: None (occurrence: US)
  Receive Date: 20190415
  Receipt Date: 20190415
  Transmission Date: 20190711
  Serious: Yes (Other)
  Sender: FDA-Public Use
  Company Number: US-ABBVIE-19K-163-2731495-00

PATIENT
  Age: 85 Year
  Sex: Male

DRUGS (1)
  1. VENCLEXTA [Suspect]
     Active Substance: VENETOCLAX
     Indication: ACUTE MYELOID LEUKAEMIA
     Route: 048
     Dates: start: 20190320

REACTIONS (16)
  - Bruxism [Unknown]
  - Platelet count decreased [Unknown]
  - Staring [Unknown]
  - Haematocrit decreased [Unknown]
  - Dizziness [Unknown]
  - Contusion [Unknown]
  - Hypotension [Unknown]
  - Hypersomnia [Unknown]
  - Weight decreased [Unknown]
  - Haemoglobin decreased [Unknown]
  - Pyrexia [Unknown]
  - White blood cell count decreased [Unknown]
  - Decreased appetite [Unknown]
  - Red blood cell count decreased [Unknown]
  - Memory impairment [Unknown]
  - Hypophagia [Unknown]

NARRATIVE: CASE EVENT DATE: 2019
